FAERS Safety Report 16568333 (Version 1)
Quarter: 2019Q3

REPORT INFORMATION
  Report Type: Spontaneous
  Country: GB (occurrence: GB)
  Receive Date: 20190712
  Receipt Date: 20190712
  Transmission Date: 20191004
  Serious: Yes (Other)
  Sender: FDA-Public Use
  Company Number: GB-ANIPHARMA-2019-UK-000118

PATIENT
  Age: 90 Year
  Sex: Female

DRUGS (7)
  1. VISCOTEARS [Concomitant]
     Active Substance: CARBOMER
     Dosage: 1 GTT DROPS
     Route: 065
     Dates: start: 20190117
  2. APIXABAN [Concomitant]
     Active Substance: APIXABAN
     Dosage: EVERY DAY
     Route: 065
     Dates: start: 20190117
  3. PRAVASTATIN. [Concomitant]
     Active Substance: PRAVASTATIN
     Dosage: EVERY DAY
     Route: 065
     Dates: start: 20190117
  4. CANDESARTAN. [Suspect]
     Active Substance: CANDESARTAN
     Indication: PRODUCT USED FOR UNKNOWN INDICATION
     Dosage: 8 MG UNK
     Route: 048
     Dates: start: 20190206
  5. EUMOVATE [Concomitant]
     Active Substance: CLOBETASONE BUTYRATE
     Dosage: EVERY DAY
     Route: 065
     Dates: start: 20190314, end: 20190411
  6. LAXIDO [Concomitant]
     Active Substance: POLYETHYLENE GLYCOL 3350\POTASSIUM CHLORIDE\SODIUM BICARBONATE\SODIUM CHLORIDE
     Dosage: EVERY DAY
     Route: 065
     Dates: start: 20190117
  7. AMLODIPINE [Concomitant]
     Active Substance: AMLODIPINE BESYLATE
     Dosage: EVERY DAY
     Route: 065
     Dates: start: 20190206

REACTIONS (2)
  - Flushing [Unknown]
  - Swollen tongue [Recovered/Resolved]

NARRATIVE: CASE EVENT DATE: 20190506
